FAERS Safety Report 18143768 (Version 2)
Quarter: 2020Q3

REPORT INFORMATION
  Report Type: Spontaneous
  Country: US (occurrence: US)
  Receive Date: 20200813
  Receipt Date: 20200825
  Transmission Date: 20201103
  Serious: Yes (Other)
  Sender: FDA-Public Use
  Company Number: US-AUROBINDO-AUR-APL-2020-038742

PATIENT
  Age: 42 Year
  Sex: Male

DRUGS (7)
  1. CARBIDOPA;LEVODOPA [Concomitant]
     Active Substance: CARBIDOPA\LEVODOPA
     Dosage: 1.5 DOSAGE FORM, 3 TIMES A DAY
     Route: 065
  2. PRAMIPEXOLE. [Suspect]
     Active Substance: PRAMIPEXOLE
     Indication: PARKINSONISM
     Dosage: 0.5 MILLIGRAM, 3 TIMES A DAY
     Route: 065
  3. CARBIDOPA;LEVODOPA [Concomitant]
     Active Substance: CARBIDOPA\LEVODOPA
     Indication: PARKINSONISM
     Dosage: 1 DOSAGE FORM, 3 TIMES A DAY
     Route: 065
  4. DESMOPRESSIN [Concomitant]
     Active Substance: DESMOPRESSIN
     Indication: EPISTAXIS
     Dosage: UNK
     Route: 065
  5. AMANTADINE. [Concomitant]
     Active Substance: AMANTADINE HYDROCHLORIDE
     Indication: PARKINSONISM
     Dosage: 100 MILLIGRAM, TWO TIMES A DAY
     Route: 065
  6. TRIHEXYPHENIDYL [Concomitant]
     Active Substance: TRIHEXYPHENIDYL
     Indication: PARKINSONISM
     Dosage: 2 MILLIGRAM, 3 TIMES A DAY
     Route: 065
  7. PRAMIPEXOLE. [Suspect]
     Active Substance: PRAMIPEXOLE
     Dosage: 1 MILLIGRAM, 3 TIMES A DAY
     Route: 065

REACTIONS (2)
  - Sexually inappropriate behaviour [Recovering/Resolving]
  - Compulsive shopping [Recovering/Resolving]
